FAERS Safety Report 6543651-0 (Version None)
Quarter: 2010Q1

REPORT INFORMATION
  Report Type: 
  Country: None (occurrence: None)
  Receive Date: 20100120
  Receipt Date: 20100111
  Transmission Date: 20100710
  Serious: Yes (Other)
  Sender: FDA-Public Use
  Company Number: GB-MERCK-1001GBR00059

PATIENT
  Sex: Male

DRUGS (2)
  1. PROSCAR [Suspect]
     Route: 048
  2. FLUOXETINE [Concomitant]
     Indication: DEPRESSION
     Route: 065

REACTIONS (1)
  - BREAST CANCER [None]
